FAERS Safety Report 24549137 (Version 1)
Quarter: 2024Q4

REPORT INFORMATION
  Report Type: Spontaneous
  Country: GB (occurrence: GB)
  Receive Date: 20241025
  Receipt Date: 20241025
  Transmission Date: 20250115
  Serious: Yes (Other)
  Sender: MYLAN
  Company Number: GB-MHRA-TPP21429734C10308259YC1729275987309

PATIENT
  Age: 64 Year
  Sex: Male
  Weight: 118 kg

DRUGS (19)
  1. ATORVASTATIN [Suspect]
     Active Substance: ATORVASTATIN
     Indication: Product used for unknown indication
     Dosage: 20 MILLIGRAM, QD (AT NIGHT)
     Route: 065
     Dates: start: 20240807, end: 20241008
  2. ROSUVASTATIN [Concomitant]
     Active Substance: ROSUVASTATIN
     Dosage: 1 DOSAGE FORM, QD
     Route: 065
  3. AMLODIPINE [Concomitant]
     Active Substance: AMLODIPINE BESYLATE
     Dosage: 1 DOSAGE FORM, QD
     Route: 065
     Dates: start: 20240611
  4. ASPIRIN [Concomitant]
     Active Substance: ASPIRIN
     Dosage: 1 DOSAGE FORM, QD
     Route: 065
     Dates: start: 20240611
  5. BISOPROLOL [Concomitant]
     Active Substance: BISOPROLOL\BISOPROLOL FUMARATE
     Dosage: 1 DOSAGE FORM, QD
     Route: 065
     Dates: start: 20240611
  6. CALCIPOTRIENE [Concomitant]
     Active Substance: CALCIPOTRIENE
     Dosage: 1 DOSAGE FORM, QD (APPLY ONCE DAILY)
     Route: 065
     Dates: start: 20240611
  7. CETIRIZINE [Concomitant]
     Active Substance: CETIRIZINE HYDROCHLORIDE
     Indication: Ill-defined disorder
     Dosage: 2 DOSAGE FORM, QD (TAKE 2 DAILY)
     Route: 065
     Dates: start: 20240611
  8. BECLOMETHASONE DIPROPIONATE [Concomitant]
     Active Substance: BECLOMETHASONE DIPROPIONATE
     Dosage: 1 DOSAGE FORM (PUFF)
     Route: 055
     Dates: start: 20240611
  9. COLCHICINE [Concomitant]
     Active Substance: COLCHICINE
     Indication: Gout
     Dosage: 1 DOSAGE FORM (TAKE TWO TO FOUR TIME...)
     Route: 065
     Dates: start: 20240611
  10. CHOLECALCIFEROL [Concomitant]
     Active Substance: CHOLECALCIFEROL
     Dosage: 1 DOSAGE FORM, QD (VITAMIN D)
     Route: 065
     Dates: start: 20240611
  11. DOXAZOSIN [Concomitant]
     Active Substance: DOXAZOSIN\DOXAZOSIN MESYLATE
     Dosage: 1 DOSAGE FORM, Q8H
     Route: 065
     Dates: start: 20240611
  12. EXOREX [Concomitant]
     Active Substance: COAL TAR
     Dosage: UNK (APPLY 2-3 TIMES/DAY TO AFFECTED AREA)
     Route: 065
     Dates: start: 20240611
  13. FEBUXOSTAT [Concomitant]
     Active Substance: FEBUXOSTAT
     Indication: Prophylaxis
     Dosage: 1 DOSAGE FORM, QD
     Route: 065
     Dates: start: 20240611
  14. LANSOPRAZOLE [Concomitant]
     Active Substance: LANSOPRAZOLE
     Dosage: 1 DOSAGE FORM, BID
     Route: 065
     Dates: start: 20240611
  15. MONTELUKAST [Concomitant]
     Active Substance: MONTELUKAST
     Dosage: 1 DOSAGE FORM, QD
     Route: 065
     Dates: start: 20240611
  16. MORPHINE SULFATE [Concomitant]
     Active Substance: MORPHINE SULFATE
     Dosage: 15 MILLILITER (EVERY 6 HOURS AS NEEDED AS PART OF REDUCIN...)
     Route: 065
     Dates: start: 20240611
  17. ACETAMINOPHEN [Concomitant]
     Active Substance: ACETAMINOPHEN
     Dosage: UNK, QID (TAKE 1-2 UP TO FOUR TIMES DAILY AS REQUIRED (MA...)
     Route: 065
     Dates: start: 20240611
  18. ALBUTEROL [Concomitant]
     Active Substance: ALBUTEROL
     Dosage: UNK (AS DIRECTED)
     Route: 065
     Dates: start: 20240611
  19. SALMETEROL [Concomitant]
     Active Substance: SALMETEROL
     Dosage: 2 DOSAGE FORM, BID (PUFFS)
     Route: 055
     Dates: start: 20240611

REACTIONS (1)
  - Vomiting [Recovered/Resolved]
